FAERS Safety Report 5255079-4 (Version None)
Quarter: 2007Q1

REPORT INFORMATION
  Report Type: 
  Country: None (occurrence: None)
  Receive Date: 20070305
  Receipt Date: 20061027
  Transmission Date: 20070707
  Serious: Yes (Hospitalization)
  Sender: FDA-Public Use
  Company Number: JP-JNJFOC-20060102989

PATIENT
  Sex: Female
  Weight: 54 kg

DRUGS (30)
  1. FENTANYL [Suspect]
     Indication: PAIN
     Route: 062
     Dates: start: 20050831
  2. NORVASC [Concomitant]
     Indication: HYPERTENSION
     Route: 048
  3. ALOSENN [Concomitant]
     Indication: CONSTIPATION
     Route: 048
  4. HALCION [Concomitant]
     Route: 048
  5. HALCION [Concomitant]
     Indication: INSOMNIA
     Route: 048
  6. MEILAX [Concomitant]
     Indication: INSOMNIA
     Route: 048
  7. ZANTAC [Concomitant]
     Indication: PROPHYLAXIS AGAINST GASTROINTESTINAL ULCER
     Route: 048
  8. CONSTAN [Concomitant]
     Route: 048
  9. CONSTAN [Concomitant]
     Indication: INSOMNIA
     Route: 048
  10. MOHRUS TAPE [Concomitant]
     Indication: ANALGESIC EFFECT
     Dosage: AS MUCH AS IS SUFFICIENT, AS NEEDED
     Route: 062
  11. CODEINE PHOSPHATE [Concomitant]
     Indication: PAIN
     Dosage: 15 MG, AS NECESSARY, POWDER, ORAL
     Route: 048
  12. OSTELUC [Concomitant]
     Indication: ANALGESIC EFFECT
     Route: 048
  13. VASOLAN [Concomitant]
     Indication: ATRIAL FIBRILLATION
     Route: 048
  14. MUCOSTA [Concomitant]
     Indication: PROPHYLAXIS AGAINST GASTROINTESTINAL ULCER
     Route: 048
  15. CARBOCAINE [Concomitant]
     Indication: ANALGESIC EFFECT
     Dosage: ON 12-SEP-2005 THE PATIENT WAS GIVEN A NERVE ROOT INJECTION WITH 4 ML MEPIVACAINE HYDROCHLORIDE 2%
     Route: 008
  16. DECADRON [Concomitant]
     Indication: ANALGESIC EFFECT
     Dosage: ON 12-SEP-2005 THE PATIENT WAS GIVEN A NERVE ROOT INJECTION WITH 4 ML DEXAMETHASONE
     Route: 008
  17. ISOVIST [Concomitant]
     Indication: SPINAL MYELOGRAM
     Route: 008
  18. FRANDOL [Concomitant]
     Indication: BLOOD PRESSURE INCREASED
     Dosage: ONE PATCH
     Route: 062
  19. DOGMATYL [Concomitant]
     Indication: VERTIGO
     Route: 048
  20. SEPAZON [Concomitant]
     Route: 048
  21. SEPAZON [Concomitant]
     Indication: VERTIGO
     Route: 048
  22. PABRON RHINITIS CAPSULE-S [Concomitant]
     Indication: NASOPHARYNGITIS
     Route: 048
  23. BACCIDAL [Concomitant]
     Indication: NASOPHARYNGITIS
     Route: 048
  24. NIFLAN [Concomitant]
     Indication: NASOPHARYNGITIS
     Route: 048
  25. OHTA'S ANTACID POWDER [Concomitant]
     Indication: PROPHYLAXIS AGAINST GASTROINTESTINAL ULCER
     Route: 048
  26. MERISLON [Concomitant]
     Route: 048
  27. MERISLON [Concomitant]
     Indication: VERTIGO
     Route: 048
  28. MAGMITT [Concomitant]
     Indication: CONSTIPATION
     Route: 048
  29. PRIMPERAN INJ [Concomitant]
     Indication: VOMITING
     Route: 042
  30. SOLITA-T [Concomitant]
     Indication: ELECTROLYTE IMBALANCE
     Route: 042

REACTIONS (6)
  - ACCIDENTAL EXPOSURE [None]
  - DIZZINESS [None]
  - GASTROENTERITIS VIRAL [None]
  - PHARYNGOLARYNGEAL PAIN [None]
  - SPINAL COMPRESSION FRACTURE [None]
  - VOMITING [None]
